FAERS Safety Report 12376333 (Version 1)
Quarter: 2016Q2

REPORT INFORMATION
  Report Type: Spontaneous
  Country: US (occurrence: US)
  Receive Date: 20160517
  Receipt Date: 20160517
  Transmission Date: 20160815
  Serious: No
  Sender: FDA-Public Use
  Company Number: US-PFIZER INC-2016258537

PATIENT
  Sex: Male

DRUGS (1)
  1. ADVIL [Suspect]
     Active Substance: IBUPROFEN
     Indication: PAIN
     Dosage: TWO IN THE MORNING, TWO IN AFTERNOON AND TWO AT NIGHT

REACTIONS (4)
  - Malaise [Unknown]
  - Chills [Unknown]
  - Intentional product use issue [Not Recovered/Not Resolved]
  - Toxicity to various agents [Unknown]
